FAERS Safety Report 5562368-2 (Version None)
Quarter: 2007Q4

REPORT INFORMATION
  Report Type: 
  Country: None (occurrence: None)
  Receive Date: 20071215
  Receipt Date: 20070901
  Transmission Date: 20080405
  Serious: No
  Sender: FDA-Public Use
  Company Number: US-AMGEN-US233859

PATIENT
  Sex: Female

DRUGS (11)
  1. ARANESP [Suspect]
     Indication: RENAL FAILURE CHRONIC
     Route: 042
     Dates: start: 20050221, end: 20070713
  2. EPOGEN [Suspect]
     Indication: RENAL FAILURE CHRONIC
     Route: 042
     Dates: start: 20070713
  3. VASOTEC [Concomitant]
     Dates: start: 19980301
  4. SYNTHROID [Concomitant]
     Dates: start: 19660101
  5. ZOCOR [Concomitant]
     Dates: start: 20070301
  6. RENAGEL [Concomitant]
     Dates: start: 20000101
  7. NEPHRO-VITE [Concomitant]
     Dates: start: 19980301
  8. VITAMIN E [Concomitant]
     Dates: start: 19970101
  9. ESTROGEN NOS [Concomitant]
     Dates: start: 19880101
  10. SENSIPAR [Concomitant]
     Dates: start: 20021208
  11. METOPROLOL [Concomitant]
     Dates: start: 20070627

REACTIONS (3)
  - ARTHROSCOPIC SURGERY [None]
  - BLOOD PRESSURE INCREASED [None]
  - HAEMOGLOBIN DECREASED [None]
